FAERS Safety Report 9458619 (Version 4)
Quarter: 2014Q3

REPORT INFORMATION
  Report Type: Report from Study
  Country: MX (occurrence: MX)
  Receive Date: 20130814
  Receipt Date: 20140730
  Transmission Date: 20150326
  Serious: Yes (Death, Other)
  Sender: FDA-Public Use
  Company Number: PHHY2013MX087263

PATIENT
  Age: 66 Year
  Sex: Male

DRUGS (3)
  1. ACLASTA [Suspect]
     Active Substance: ZOLEDRONIC ACID
     Indication: OSTEOPOROSIS
     Dosage: 5 MG/100 ML, UNK
     Route: 042
     Dates: start: 20130808
  2. INSULIN [Concomitant]
     Active Substance: INSULIN NOS
     Indication: DIABETES MELLITUS
     Dosage: 1 DF, QD
  3. METFORMIN [Concomitant]
     Active Substance: METFORMIN HYDROCHLORIDE
     Indication: DIABETES MELLITUS
     Dosage: 500 MG, QD

REACTIONS (10)
  - Vomiting [Unknown]
  - Aspiration bronchial [Unknown]
  - Cardiac arrest [Fatal]
  - Feeling cold [Unknown]
  - Somnolence [Unknown]
  - Myocardial infarction [Unknown]
  - Unresponsive to stimuli [Unknown]
  - Respiratory arrest [Unknown]
  - Asthenia [Unknown]
  - Shock hypoglycaemic [Fatal]

NARRATIVE: CASE EVENT DATE: 20130808
